FAERS Safety Report 25272651 (Version 3)
Quarter: 2025Q2

REPORT INFORMATION
  Report Type: Spontaneous
  Country: RO (occurrence: RO)
  Receive Date: 20250506
  Receipt Date: 20250604
  Transmission Date: 20250716
  Serious: Yes (Other)
  Sender: BRISTOL-MYERS SQUIBB COMPANY
  Company Number: RO-BRISTOL-MYERS SQUIBB COMPANY-2025-062588

PATIENT
  Age: 72 Year
  Sex: Female
  Weight: 68 kg

DRUGS (4)
  1. ELIQUIS [Suspect]
     Active Substance: APIXABAN
     Indication: Atrial flutter
     Route: 048
     Dates: start: 2024, end: 202404
  2. ELIQUIS [Suspect]
     Active Substance: APIXABAN
     Route: 048
  3. METOPROLOL [Concomitant]
     Active Substance: METOPROLOL
     Indication: Product used for unknown indication
  4. NEXIUM I.V. [Concomitant]
     Active Substance: ESOMEPRAZOLE SODIUM
     Indication: Product used for unknown indication

REACTIONS (19)
  - Eye haemorrhage [Recovering/Resolving]
  - Vision blurred [Recovering/Resolving]
  - Haematuria [Unknown]
  - Atrial fibrillation [Unknown]
  - Sensation of blood flow [Unknown]
  - Condition aggravated [Unknown]
  - Hemiplegia [Not Recovered/Not Resolved]
  - Rash papular [Recovered/Resolved]
  - Off label use [Unknown]
  - Haematochezia [Recovered/Resolved]
  - Gastric haemorrhage [Not Recovered/Not Resolved]
  - Heart rate decreased [Not Recovered/Not Resolved]
  - Treatment noncompliance [Unknown]
  - Vasodilatation [Not Recovered/Not Resolved]
  - Dehydration [Not Recovered/Not Resolved]
  - Abdominal pain upper [Unknown]
  - Movement disorder [Not Recovered/Not Resolved]
  - Musculoskeletal stiffness [Not Recovered/Not Resolved]
  - Hypoaesthesia [Not Recovered/Not Resolved]

NARRATIVE: CASE EVENT DATE: 20240101
